FAERS Safety Report 6923875-0 (Version None)
Quarter: 2010Q3

REPORT INFORMATION
  Report Type: 
  Country: None (occurrence: None)
  Receive Date: 20100813
  Receipt Date: 20100211
  Transmission Date: 20110219
  Serious: No
  Sender: FDA-Public Use
  Company Number: US-BRISTOL-MYERS SQUIBB COMPANY-14973705

PATIENT
  Age: 25 Year
  Sex: Female

DRUGS (4)
  1. REYATAZ [Suspect]
  2. RITONAVIR [Suspect]
  3. EPZICOM [Suspect]
     Dosage: 1DF- 1 TAB. INTERRUPTED AND LATER RESTARTED.
  4. ISENTRESS [Suspect]

REACTIONS (2)
  - PREGNANCY [None]
  - RASH [None]
